FAERS Safety Report 5762467-6 (Version None)
Quarter: 2008Q2

REPORT INFORMATION
  Report Type: 
  Country: None (occurrence: None)
  Receive Date: 20080609
  Receipt Date: 20080606
  Transmission Date: 20081010
  Serious: Yes (Life-Threatening, Hospitalization, Other)
  Sender: FDA-Public Use
  Company Number: DE-BAYER-DE-2006-030069

PATIENT
  Age: 40 Year
  Sex: Male
  Weight: 74 kg

DRUGS (7)
  1. MAGNEVIST [Suspect]
     Indication: NUCLEAR MAGNETIC RESONANCE IMAGING
     Dosage: UNIT DOSE: 16 ML
     Route: 042
     Dates: start: 20000905, end: 20000905
  2. MAGNEVIST [Suspect]
     Dosage: UNIT DOSE: 16 ML
     Route: 042
     Dates: start: 20040622, end: 20040622
  3. MAGNEVIST [Suspect]
     Dosage: UNIT DOSE: 16 ML
     Route: 042
     Dates: start: 20050128, end: 20050128
  4. MAGNEVIST [Suspect]
     Dosage: UNIT DOSE: 36 ML
     Route: 042
     Dates: start: 20060505, end: 20060505
  5. MAGNEVIST [Suspect]
     Dosage: UNIT DOSE: 40 ML
     Route: 042
     Dates: start: 20060623, end: 20060623
  6. MAGNEVIST [Suspect]
     Dosage: UNIT DOSE: 35 ML
     Route: 042
     Dates: start: 20060222, end: 20060222
  7. MAGNEVIST [Suspect]
     Dosage: UNIT DOSE: 32 ML
     Dates: start: 20060328, end: 20060328

REACTIONS (17)
  - ANAEMIA [None]
  - ARTHRALGIA [None]
  - ASTHENIA [None]
  - COUGH [None]
  - EXTREMITY CONTRACTURE [None]
  - FIBROSIS [None]
  - GENERAL PHYSICAL HEALTH DETERIORATION [None]
  - HYPERTROPHY [None]
  - MOBILITY DECREASED [None]
  - NEPHROGENIC SYSTEMIC FIBROSIS [None]
  - OEDEMA PERIPHERAL [None]
  - PAIN IN EXTREMITY [None]
  - PARAESTHESIA [None]
  - POLYNEUROPATHY [None]
  - RENAL FAILURE CHRONIC [None]
  - SCLERODERMA [None]
  - WEIGHT DECREASED [None]
